FAERS Safety Report 7374702-1 (Version None)
Quarter: 2011Q1

REPORT INFORMATION
  Report Type: 
  Country: None (occurrence: None)
  Receive Date: 20110325
  Receipt Date: 20100823
  Transmission Date: 20110831
  Serious: No
  Sender: FDA-Public Use
  Company Number: US-MYLANLABS-2010S1014656

PATIENT
  Age: 51 Year
  Sex: Male
  Weight: 97.52 kg

DRUGS (5)
  1. FENTANYL-100 [Suspect]
     Dosage: Q72H
     Route: 062
     Dates: start: 20090801
  2. FENTANYL-100 [Suspect]
     Indication: BACK PAIN
     Dosage: Q72H
     Route: 062
     Dates: start: 20090801
  3. FENTANYL-100 [Suspect]
     Indication: INTERVERTEBRAL DISC DEGENERATION
     Dosage: Q72H
     Route: 062
     Dates: start: 20090801
  4. FENTANYL-100 [Suspect]
     Dosage: Q72H
     Route: 062
     Dates: start: 20090801
  5. OXYCODONE [Concomitant]
     Indication: BREAKTHROUGH PAIN
     Route: 048

REACTIONS (3)
  - BACK PAIN [None]
  - CHILLS [None]
  - DRUG EFFECT DECREASED [None]
